FAERS Safety Report 9580715 (Version 4)
Quarter: 2013Q4

REPORT INFORMATION
  Report Type: Report from Study
  Country: DE (occurrence: DE)
  Receive Date: 20131002
  Receipt Date: 20131030
  Transmission Date: 20140711
  Serious: Yes (Hospitalization, Other)
  Sender: FDA-Public Use
  Company Number: DE-JNJFOC-20130917269

PATIENT
  Age: 40 Year
  Sex: Female
  Weight: 78 kg

DRUGS (6)
  1. REMICADE [Suspect]
     Indication: CROHN^S DISEASE
     Route: 042
     Dates: start: 20130606, end: 20130606
  2. REMICADE [Suspect]
     Indication: CROHN^S DISEASE
     Route: 042
     Dates: start: 20130524
  3. SALOFALK [Concomitant]
     Route: 065
     Dates: start: 201304, end: 201307
  4. PANTOPRAZOLE [Concomitant]
     Indication: GASTRITIS
     Route: 065
     Dates: start: 201304
  5. NOVAMIN [Concomitant]
     Indication: PAIN
     Dosage: 20 GTS
     Route: 065
  6. CLEXANE [Concomitant]
     Indication: THROMBOSIS
     Dosage: DOSE: 2 X 0.6 (UNITS UNSPECIFIED)
     Route: 065
     Dates: start: 201304, end: 201307

REACTIONS (4)
  - Neoplasm [Not Recovered/Not Resolved]
  - Fistula [Not Recovered/Not Resolved]
  - Abdominal pain lower [Not Recovered/Not Resolved]
  - Subileus [Recovering/Resolving]
